FAERS Safety Report 7049380-1 (Version None)
Quarter: 2010Q4

REPORT INFORMATION
  Report Type: 
  Country: None (occurrence: None)
  Receive Date: 20101012
  Receipt Date: 20100930
  Transmission Date: 20110411
  Serious: Yes (Death, Hospitalization)
  Sender: FDA-Public Use
  Company Number: 019645

PATIENT
  Sex: Female

DRUGS (7)
  1. KEPPRA [Suspect]
     Indication: STATUS EPILEPTICUS
     Dosage: (1000 MG QD, ONCE INTRAVENOUS (NOT OTHERWISE SPECIFIED))
     Route: 042
     Dates: start: 20100828, end: 20100828
  2. KEPPRA [Suspect]
     Indication: STATUS EPILEPTICUS
     Dosage: (2000 MG ORAL)
     Route: 048
  3. DIURAL /00032601/ [Concomitant]
  4. DIAZEPAM [Concomitant]
  5. TOPIRAMATE [Concomitant]
  6. ALPHA-ADRENORECEPTOR ANTAGONISTS [Concomitant]
  7. BETA BLOCKING AGENTS [Concomitant]

REACTIONS (7)
  - ACUTE HEPATIC FAILURE [None]
  - HAEMOGLOBIN INCREASED [None]
  - INTERNATIONAL NORMALISED RATIO INCREASED [None]
  - PNEUMONIA [None]
  - PULMONARY OEDEMA [None]
  - RENAL FAILURE [None]
  - STATUS EPILEPTICUS [None]
